FAERS Safety Report 23814547 (Version 1)
Quarter: 2024Q2

REPORT INFORMATION
  Report Type: Report from Study
  Country: US (occurrence: US)
  Receive Date: 20240503
  Receipt Date: 20240503
  Transmission Date: 20240716
  Serious: Yes (Other)
  Sender: FDA-Public Use
  Company Number: US-MYLANLABS-2024M1039254

PATIENT
  Sex: Female

DRUGS (4)
  1. PREDNISONE [Suspect]
     Active Substance: PREDNISONE
     Indication: Retinal vasculitis
     Dosage: 60 MILLIGRAM, QD
     Route: 048
  2. PREDNISONE [Suspect]
     Active Substance: PREDNISONE
     Dosage: UNK; THERAPY WAS TAPERED (UNSPECIFIED DOSE) SEVERAL TIMES IN TEN YEARS PERIOD
     Route: 048
  3. MYCOPHENOLATE MOFETIL [Suspect]
     Active Substance: MYCOPHENOLATE MOFETIL
     Indication: Retinal vasculitis
     Dosage: 1.5 GRAM, BID
     Route: 048
  4. MYCOPHENOLATE MOFETIL [Suspect]
     Active Substance: MYCOPHENOLATE MOFETIL
     Dosage: UNK; THERAPY WAS TAPERED (UNSPECIFIED DOSE) SEVERAL TIMES IN TEN YEARS PERIOD
     Route: 048

REACTIONS (3)
  - Retinal vasculitis [Unknown]
  - Rebound effect [Unknown]
  - Off label use [Unknown]
